FAERS Safety Report 7138436-0 (Version None)
Quarter: 2010Q4

REPORT INFORMATION
  Report Type: 
  Country: None (occurrence: None)
  Receive Date: 20101206
  Receipt Date: 20101123
  Transmission Date: 20110411
  Serious: Yes (Other)
  Sender: FDA-Public Use
  Company Number: PHHY2010US80092

PATIENT
  Sex: Female

DRUGS (3)
  1. EXELON [Suspect]
     Dosage: UNK
     Route: 062
  2. ARICEPT [Concomitant]
  3. NAMENDA [Concomitant]

REACTIONS (2)
  - GENERAL PHYSICAL HEALTH DETERIORATION [None]
  - ILLUSION [None]
